FAERS Safety Report 23421295 (Version 1)
Quarter: 2024Q1

REPORT INFORMATION
  Report Type: Spontaneous
  Country: UA (occurrence: UA)
  Receive Date: 20240119
  Receipt Date: 20240119
  Transmission Date: 20240410
  Serious: Yes (Hospitalization, Other)
  Sender: FDA-Public Use
  Company Number: UA-BAYER-2024A005109

PATIENT
  Age: 29 Year
  Sex: Female

DRUGS (1)
  1. DROSPIRENONE\ETHINYL ESTRADIOL [Suspect]
     Active Substance: DROSPIRENONE\ETHINYL ESTRADIOL
     Indication: Oral contraception
     Dosage: 1 DF, QD, LONGTERM
     Route: 048

REACTIONS (3)
  - Drug-induced liver injury [Recovered/Resolved]
  - Jaundice [Recovering/Resolving]
  - Pruritus [Recovered/Resolved]

NARRATIVE: CASE EVENT DATE: 20230328
